FAERS Safety Report 4431946-6 (Version None)
Quarter: 2004Q3

REPORT INFORMATION
  Report Type: 
  Country: None (occurrence: None)
  Receive Date: 20040818
  Receipt Date: 20040802
  Transmission Date: 20050211
  Serious: Yes (Other)
  Sender: FDA-Public Use
  Company Number: WAES 0408USA00136

PATIENT
  Age: 57 Year
  Sex: Female
  Weight: 59.8748 kg

DRUGS (5)
  1. FOSAMAX [Suspect]
     Indication: OSTEOPOROSIS
     Dosage: 10 MG/DAILY/PO
     Route: 048
     Dates: start: 20040601, end: 20040715
  2. PLACEBO [Suspect]
     Indication: OSTEOPOROSIS
     Dosage: PO
     Route: 048
     Dates: start: 20040601, end: 20040715
  3. MULTIVITAMIN [Concomitant]
  4. CITRUCEL [Concomitant]
  5. ZOMIG [Concomitant]

REACTIONS (10)
  - ANAEMIA [None]
  - BLOOD ELECTROLYTES ABNORMAL [None]
  - CHEST PAIN [None]
  - FATIGUE [None]
  - HAEMORRHAGE [None]
  - LIVER DISORDER [None]
  - MYOCARDIAL INFARCTION [None]
  - NAUSEA [None]
  - PAIN IN EXTREMITY [None]
  - RENAL DISORDER [None]
